FAERS Safety Report 7730229-6 (Version None)
Quarter: 2011Q3

REPORT INFORMATION
  Report Type: 
  Country: None (occurrence: None)
  Receive Date: 20110906
  Receipt Date: 20110831
  Transmission Date: 20111222
  Serious: Yes (Other)
  Sender: FDA-Public Use
  Company Number: DE-SANOFI-AVENTIS-2011SA056341

PATIENT
  Age: 44 Year
  Sex: Female

DRUGS (4)
  1. CYCLOPHOSPHAMIDE [Concomitant]
     Indication: BREAST CANCER
     Route: 065
  2. EPIRUBICIN [Concomitant]
     Indication: BREAST CANCER
     Route: 065
  3. DOCETAXEL [Suspect]
     Indication: BREAST CANCER
     Route: 041
     Dates: start: 20100107, end: 20100107
  4. DOCETAXEL [Suspect]
     Route: 041
     Dates: start: 20100311, end: 20100311

REACTIONS (1)
  - DIABETIC COMA [None]
